FAERS Safety Report 7232068-1 (Version None)
Quarter: 2011Q1

REPORT INFORMATION
  Report Type: 
  Country: None (occurrence: None)
  Receive Date: 20110118
  Receipt Date: 20110105
  Transmission Date: 20110831
  Serious: Yes (Death)
  Sender: FDA-Public Use
  Company Number: GB-MYLANLABS-2011S1000458

PATIENT
  Age: 25 Year
  Sex: Male

DRUGS (16)
  1. CYCLOSERINE [Concomitant]
     Indication: TUBERCULOSIS
  2. HEPARIN [Concomitant]
     Indication: PRODUCT USED FOR UNKNOWN INDICATION
     Dosage: LOW MOLECULAR WEIGHT
  3. RITONAVIR [Suspect]
     Indication: PRODUCT USED FOR UNKNOWN INDICATION
  4. LINEZOLID [Concomitant]
     Indication: TUBERCULOSIS
  5. CLOFAZIMINE [Concomitant]
     Indication: PRODUCT USED FOR UNKNOWN INDICATION
  6. TRUVADA [Concomitant]
     Indication: HIV INFECTION
  7. VALGANCICLOVIR HCL [Concomitant]
     Indication: PRODUCT USED FOR UNKNOWN INDICATION
  8. FLUCONAZOLE [Suspect]
     Indication: ORAL CANDIDIASIS
  9. ETHAMBUTOL HYDROCHLORIDE [Concomitant]
     Indication: TUBERCULOSIS
  10. PROTHIONAMIDE [Concomitant]
     Indication: TUBERCULOSIS
  11. EFAVIRENZ [Concomitant]
     Indication: HIV INFECTION
  12. ONDANSETRON [Suspect]
     Indication: PRODUCT USED FOR UNKNOWN INDICATION
  13. MOXIFLOXACIN [Suspect]
     Indication: TUBERCULOSIS
  14. AMIKACIN [Concomitant]
     Indication: TUBERCULOSIS
     Route: 042
  15. PYRAZINAMIDE [Concomitant]
     Indication: TUBERCULOSIS
  16. DARUNAVIR [Concomitant]
     Indication: PRODUCT USED FOR UNKNOWN INDICATION

REACTIONS (1)
  - ARRHYTHMIA [None]
